FAERS Safety Report 15947664 (Version 7)
Quarter: 2020Q1

REPORT INFORMATION
  Report Type: Spontaneous
  Country: US (occurrence: US)
  Receive Date: 20190211
  Receipt Date: 20200217
  Transmission Date: 20200409
  Serious: Yes (Other)
  Sender: FDA-Public Use
  Company Number: US-PFIZER INC-2018395471

PATIENT
  Age: 69 Year
  Sex: Male

DRUGS (5)
  1. CHANTIX [Suspect]
     Active Substance: VARENICLINE TARTRATE
     Indication: SMOKING CESSATION THERAPY
     Dosage: UNK
  2. CHANTIX [Suspect]
     Active Substance: VARENICLINE TARTRATE
     Dosage: UNK, ALTERNATE DAY
  3. CHANTIX [Suspect]
     Active Substance: VARENICLINE TARTRATE
     Dosage: UNK (TAKE 2 A DAY WITH THE FIRST CARD AND THEN ONE A DAY ONE THE SECOND CARD)
  4. CHANTIX [Suspect]
     Active Substance: VARENICLINE TARTRATE
     Dosage: UNK, DAILY (ONE PER DAY)
     Dates: end: 20190120
  5. CHANTIX [Suspect]
     Active Substance: VARENICLINE TARTRATE
     Dosage: UNK, 1X/DAY,  (1 A DAY)

REACTIONS (3)
  - Lung carcinoma cell type unspecified stage IV [Unknown]
  - Therapeutic product effect delayed [Unknown]
  - Intentional product misuse [Unknown]
